FAERS Safety Report 12695371 (Version 1)
Quarter: 2016Q3

REPORT INFORMATION
  Report Type: Spontaneous
  Country: US (occurrence: US)
  Receive Date: 20160829
  Receipt Date: 20160829
  Transmission Date: 20161109
  Serious: Yes (Hospitalization)
  Sender: FDA-Public Use
  Company Number: US-TEVA-688090USA

PATIENT
  Age: 85 Year
  Sex: Female
  Weight: 52.07 kg

DRUGS (20)
  1. FERROUS SULFATE. [Concomitant]
     Active Substance: FERROUS SULFATE
     Route: 065
     Dates: start: 20141120
  2. PAROXETINE. [Concomitant]
     Active Substance: PAROXETINE
     Dates: start: 20061111
  3. WARFARIN [Concomitant]
     Active Substance: WARFARIN
     Dates: start: 20150929
  4. SPIRONOLACTONE. [Suspect]
     Active Substance: SPIRONOLACTONE
     Indication: CARDIAC FAILURE
     Dosage: 12.5 MILLIGRAM DAILY;
     Route: 048
     Dates: start: 20130329, end: 20160712
  5. LOSARTAN. [Suspect]
     Active Substance: LOSARTAN
     Indication: CARDIAC FAILURE
     Dosage: 100 MILLIGRAM DAILY;
     Route: 048
     Dates: start: 20130118, end: 20160712
  6. FLUTICASONE SALMETEROL [Concomitant]
     Active Substance: FLUTICASONE PROPIONATE\SALMETEROL XINAFOATE
     Dates: start: 20110810
  7. CALCIUM [Concomitant]
     Active Substance: CALCIUM
     Route: 065
     Dates: start: 20130318
  8. DIGOXIN. [Concomitant]
     Active Substance: DIGOXIN
     Dates: start: 20130122
  9. LEVOTHYROXINE. [Concomitant]
     Active Substance: LEVOTHYROXINE
     Route: 065
     Dates: start: 20131004
  10. SIMVASTATIN. [Concomitant]
     Active Substance: SIMVASTATIN
     Route: 065
     Dates: start: 20111121
  11. OXYGEN. [Concomitant]
     Active Substance: OXYGEN
     Dates: start: 20071015
  12. FUROSEMIDE. [Suspect]
     Active Substance: FUROSEMIDE
     Indication: CARDIAC FAILURE
     Dosage: 20 MILLIGRAM DAILY;
     Route: 048
     Dates: start: 20141015, end: 20160712
  13. PF-04950615;PLACEBO (CODE NOT BROKEN) [Concomitant]
     Active Substance: BOCOCIZUMAB
     Indication: CARDIOVASCULAR DISORDER
     Route: 058
     Dates: start: 20151117, end: 20160712
  14. CLOPIDOGREL [Concomitant]
     Active Substance: CLOPIDOGREL BISULFATE
     Dates: start: 20141113
  15. METOPROLOL. [Concomitant]
     Active Substance: METOPROLOL
     Route: 065
     Dates: start: 20130116
  16. TIOTROPIUM BROMIDE [Concomitant]
     Active Substance: TIOTROPIUM BROMIDE
     Dates: start: 20120827
  17. ALBUTEROL. [Concomitant]
     Active Substance: ALBUTEROL
     Route: 065
     Dates: start: 20130425
  18. KLOR-CON M20 [Concomitant]
     Active Substance: POTASSIUM CHLORIDE
     Route: 065
     Dates: start: 20160315
  19. OMEPRAZOLE. [Concomitant]
     Active Substance: OMEPRAZOLE
     Dates: start: 20111010
  20. POTASSIUM CHLORIDE. [Concomitant]
     Active Substance: POTASSIUM CHLORIDE
     Dates: start: 20150911

REACTIONS (3)
  - Ureteric obstruction [Recovering/Resolving]
  - Acute kidney injury [Recovering/Resolving]
  - Ureterolithiasis [Recovering/Resolving]

NARRATIVE: CASE EVENT DATE: 20160710
